FAERS Safety Report 4824022-1 (Version None)
Quarter: 2005Q4

REPORT INFORMATION
  Report Type: 
  Country: None (occurrence: None)
  Receive Date: 20051108
  Receipt Date: 20051102
  Transmission Date: 20060501
  Serious: Yes (Hospitalization)
  Sender: FDA-Public Use
  Company Number: TCI2005A04520

PATIENT
  Age: 72 Year
  Sex: Male

DRUGS (3)
  1. LEUPROLIDE ACETATE [Suspect]
     Indication: PROSTATE CANCER
     Dosage: SUBCUTANEOUS
     Route: 058
     Dates: start: 20050311
  2. HONVAN (FOSFESTROL TETRASODIUM) [Suspect]
     Indication: PROSTATE CANCER
     Dates: start: 20050311
  3. CHLORMADINONE ACETATE TAB [Suspect]
     Indication: PROSTATE CANCER
     Dates: start: 20050311

REACTIONS (6)
  - ASTHENIA [None]
  - DEPRESSED LEVEL OF CONSCIOUSNESS [None]
  - DYSARTHRIA [None]
  - DYSLALIA [None]
  - INTRACRANIAL VENOUS SINUS THROMBOSIS [None]
  - QUADRIPLEGIA [None]
